FAERS Safety Report 6030278-2 (Version None)
Quarter: 2009Q1

REPORT INFORMATION
  Report Type: 
  Country: None (occurrence: None)
  Receive Date: 20090107
  Receipt Date: 20090102
  Transmission Date: 20090719
  Serious: Yes (Hospitalization)
  Sender: FDA-Public Use
  Company Number: US-SANOFI-SYNTHELABO-F01200900002

PATIENT

DRUGS (4)
  1. BEVACIZUMAB [Suspect]
     Route: 041
     Dates: start: 20071227, end: 20071227
  2. LEUCOVORIN CALCIUM [Suspect]
     Dosage: UNK
     Route: 041
  3. FLUOROURACIL [Suspect]
     Dosage: 400 MG/M2 IV BOLUS FOLLOWED BY 2.4 G/M2 CONTINUOUS INFUSION OVER 46 HOURS
     Route: 042
  4. OXALIPLATIN [Suspect]
     Indication: RECTAL CANCER
     Route: 041
     Dates: start: 20071227, end: 20071227

REACTIONS (3)
  - ANAL FISTULA [None]
  - CONSTIPATION [None]
  - PROCTALGIA [None]
